FAERS Safety Report 5943121-4 (Version None)
Quarter: 2008Q4

REPORT INFORMATION
  Report Type: 
  Country: None (occurrence: None)
  Receive Date: 20081106
  Receipt Date: 20081029
  Transmission Date: 20090506
  Serious: Yes (Hospitalization)
  Sender: FDA-Public Use
  Company Number: JP-SP-2008-02485

PATIENT
  Age: 85 Year
  Sex: Male

DRUGS (7)
  1. IMMUCYST [Suspect]
     Indication: BLADDER CANCER
     Route: 043
     Dates: start: 20080725, end: 20080725
  2. IMMUCYST [Suspect]
     Route: 043
     Dates: start: 20080725, end: 20080725
  3. ASPIRIN DIALUMINATE [Concomitant]
     Dates: start: 20071016
  4. ISOSORBIDE DINITRATE [Concomitant]
     Dates: start: 20071016
  5. BROTIZOLAM [Concomitant]
     Dates: start: 20060926
  6. NAFTOPIDIL [Concomitant]
     Dates: start: 20061114
  7. MEFENAMIC ACID [Concomitant]
     Dates: start: 20070306

REACTIONS (2)
  - PYREXIA [None]
  - VOMITING [None]
